FAERS Safety Report 20559928 (Version 1)
Quarter: 2022Q1

REPORT INFORMATION
  Report Type: Spontaneous
  Country: US (occurrence: None)
  Receive Date: 20220305
  Receipt Date: 20220305
  Transmission Date: 20220423
  Serious: Yes (Hospitalization)
  Sender: FDA-Public Use
  Company Number: None

PATIENT
  Age: 55 Year
  Sex: Male
  Weight: 75.9 kg

DRUGS (5)
  1. CYTARABINE [Suspect]
     Active Substance: CYTARABINE
     Dates: end: 20211218
  2. SPRYCEL [Suspect]
     Active Substance: DASATINIB
     Dates: end: 20220302
  3. DEXAMETHASONE [Suspect]
     Active Substance: DEXAMETHASONE
     Dates: end: 20211218
  4. METHOTREXATE [Suspect]
     Active Substance: METHOTREXATE
     Dates: end: 20211216
  5. VINCRISTINE SULFATE [Suspect]
     Active Substance: VINCRISTINE SULFATE
     Dates: end: 20211203

REACTIONS (6)
  - Oesophagitis [None]
  - Haematemesis [None]
  - Gastrointestinal mucosa hyperaemia [None]
  - Haematemesis [None]
  - Red blood cell count decreased [None]
  - Haemoglobin decreased [None]

NARRATIVE: CASE EVENT DATE: 20220301
